FAERS Safety Report 10018033 (Version 1)
Quarter: 2014Q1

REPORT INFORMATION
  Report Type: Spontaneous
  Country: US (occurrence: US)
  Receive Date: 20140318
  Receipt Date: 20140318
  Transmission Date: 20141002
  Serious: No
  Sender: FDA-Public Use
  Company Number: US-BRISTOL-MYERS SQUIBB COMPANY-18889550

PATIENT
  Age: 76 Year
  Sex: Male

DRUGS (1)
  1. ERBITUX [Suspect]
     Dosage: RECENT DOSE:06MAY2013
     Dates: start: 201301

REACTIONS (4)
  - Dry skin [Unknown]
  - Nausea [Unknown]
  - Malaise [Unknown]
  - Chills [Unknown]
